FAERS Safety Report 18096518 (Version 1)
Quarter: 2020Q3

REPORT INFORMATION
  Report Type: Spontaneous
  Country: ES (occurrence: ES)
  Receive Date: 20200731
  Receipt Date: 20200731
  Transmission Date: 20201103
  Serious: Yes (Other)
  Sender: FDA-Public Use
  Company Number: ES-AUROBINDO-AUR-APL-2020-036706

PATIENT

DRUGS (7)
  1. AMOXICILLIN+CLAVULANIC ACID 875/125MG [Suspect]
     Active Substance: AMOXICILLIN\CLAVULANIC ACID
     Indication: ROSACEA
     Dosage: UNK, 3 TIMES A DAY (875/125MG)
     Route: 064
  2. ERYTHROMYCIN. [Suspect]
     Active Substance: ERYTHROMYCIN
     Indication: ROSACEA
     Dosage: UNK, TWO TIMES A DAY
     Route: 064
  3. ERYTHROMYCIN. [Suspect]
     Active Substance: ERYTHROMYCIN
     Indication: ROSACEA
     Dosage: 1 GRAM, TWO TIMES A DAY
     Route: 064
  4. METRONIDAZOLE. [Suspect]
     Active Substance: METRONIDAZOLE
     Indication: ROSACEA
     Dosage: 250 MILLIGRAM, TWO TIMES A DAY
     Route: 064
  5. ZINC OXIDE. [Suspect]
     Active Substance: ZINC OXIDE
     Indication: ROSACEA
     Dosage: UNK, TWO TIMES A DAY
     Route: 064
  6. METRONIDAZOLE. [Suspect]
     Active Substance: METRONIDAZOLE
     Indication: ROSACEA
     Dosage: UNK, TWO TIMES A DAY
     Route: 064
  7. MUPIROCIN. [Suspect]
     Active Substance: MUPIROCIN
     Indication: ROSACEA
     Dosage: UNK, TWO TIMES A DAY
     Route: 064

REACTIONS (2)
  - Foetal exposure during pregnancy [Unknown]
  - Foetal growth restriction [Unknown]
